FAERS Safety Report 4406552-X (Version None)
Quarter: 2004Q3

REPORT INFORMATION
  Report Type: 
  Country: None (occurrence: None)
  Receive Date: 20040723
  Receipt Date: 20040713
  Transmission Date: 20050211
  Serious: Yes (Hospitalization)
  Sender: FDA-Public Use
  Company Number: FR-ROCHE-374443

PATIENT
  Age: 60 Year
  Sex: Male

DRUGS (11)
  1. CAPECITABINE [Suspect]
     Route: 048
     Dates: start: 20040621
  2. E7070 [Suspect]
     Dosage: INTERMITTANT
     Route: 042
     Dates: start: 20040621
  3. DEXTROPROPOXYPHENE [Concomitant]
     Indication: ABDOMINAL PAIN
     Route: 048
  4. TRIMETAZIDINE [Concomitant]
     Route: 048
  5. GLYCEROL 2.6% [Concomitant]
     Indication: PALMAR-PLANTAR ERYTHRODYSAESTHESIA SYNDROME
     Route: 061
     Dates: start: 20040622
  6. VASELINE [Concomitant]
     Indication: PALMAR-PLANTAR ERYTHRODYSAESTHESIA SYNDROME
     Route: 061
     Dates: start: 20040622
  7. PARAFFIN [Concomitant]
     Indication: PALMAR-PLANTAR ERYTHRODYSAESTHESIA SYNDROME
     Route: 061
     Dates: start: 20040622
  8. BICARBONATE [Concomitant]
     Indication: DYSGEUSIA
     Dates: start: 20040622
  9. CHLORHEXIDINE [Concomitant]
     Indication: DYSGEUSIA
     Dates: start: 20040622
  10. OMEPRAZOLE [Concomitant]
     Route: 048
     Dates: start: 20040628
  11. ACETAMINOPHEN [Concomitant]
     Indication: ABDOMINAL PAIN
     Route: 048

REACTIONS (2)
  - GINGIVAL BLEEDING [None]
  - LIP HAEMORRHAGE [None]
